FAERS Safety Report 10408523 (Version 1)
Quarter: 2014Q3

REPORT INFORMATION
  Report Type: Spontaneous
  Country: US (occurrence: None)
  Receive Date: 20140822
  Receipt Date: 20140822
  Transmission Date: 20150326
  Serious: Yes (Hospitalization)
  Sender: FDA-Public Use
  Company Number: None

PATIENT
  Age: 25 Year
  Sex: Female
  Weight: 90.72 kg

DRUGS (1)
  1. MACROBID [Suspect]
     Active Substance: NITROFURANTOIN\NITROFURANTOIN MONOHYDRATE
     Indication: URINARY TRACT INFECTION
     Dosage: 1 PILL TWICE DAILY TAKEN BY MOUTH
     Route: 048

REACTIONS (8)
  - Dizziness [None]
  - Abdominal pain [None]
  - Pallor [None]
  - Somnolence [None]
  - Asthenia [None]
  - Blood pressure decreased [None]
  - Skin discolouration [None]
  - Malaise [None]

NARRATIVE: CASE EVENT DATE: 20140821
